FAERS Safety Report 4332978-9 (Version None)
Quarter: 2004Q1

REPORT INFORMATION
  Report Type: 
  Country: None (occurrence: None)
  Receive Date: 20040330
  Receipt Date: 20040318
  Transmission Date: 20041129
  Serious: No
  Sender: FDA-Public Use
  Company Number: 04P-229-0254151-00

PATIENT
  Age: 26 Year
  Sex: Male

DRUGS (3)
  1. BIAXIN [Suspect]
     Indication: BACTERIAL INFECTION
     Dosage: 100 MG, IN 1 D, PER ORAL
     Route: 048
     Dates: start: 20031229, end: 20040105
  2. PROTIUM (PANTOPRAZOLE) [Suspect]
     Indication: BACTERIAL INFECTION
     Dosage: 80 MG, 1 IN 1 D, PER ORAL
     Route: 048
     Dates: start: 20031229
  3. AMOXICILLIN TRIHYDRATE [Suspect]
     Indication: BACTERIAL INFECTION
     Dosage: 2 GM, 1 IN 1 D, PER ORAL
     Route: 048
     Dates: start: 20031229, end: 20040105

REACTIONS (2)
  - DEPRESSION [None]
  - SUICIDE ATTEMPT [None]
